FAERS Safety Report 9364894 (Version 1)
Quarter: 2013Q2

REPORT INFORMATION
  Report Type: Spontaneous
  Country: GB (occurrence: GB)
  Receive Date: 20130624
  Receipt Date: 20130624
  Transmission Date: 20140414
  Serious: Yes (Other)
  Sender: FDA-Public Use
  Company Number: GB-GLAXOSMITHKLINE-B0900476A

PATIENT
  Age: 66 Year
  Sex: Male

DRUGS (2)
  1. FLIXONASE [Suspect]
     Indication: SINUS DISORDER
     Dosage: 400MCG TWICE PER DAY
     Route: 045
     Dates: start: 20130515
  2. CETIRIZINE [Concomitant]

REACTIONS (1)
  - Renal failure chronic [Not Recovered/Not Resolved]
